FAERS Safety Report 13388993 (Version 1)
Quarter: 2017Q1

REPORT INFORMATION
  Report Type: Spontaneous
  Country: US (occurrence: US)
  Receive Date: 20170330
  Receipt Date: 20170330
  Transmission Date: 20170429
  Serious: Yes (Hospitalization)
  Sender: FDA-Public Use
  Company Number: US-OREXIGEN THERAPEUTICS, INC.-1064823

PATIENT
  Age: 39 Year
  Sex: Female
  Weight: 137 kg

DRUGS (14)
  1. CONTRAVE [Suspect]
     Active Substance: BUPROPION HYDROCHLORIDE\NALTREXONE HYDROCHLORIDE
     Indication: WEIGHT CONTROL
     Dates: start: 201703
  2. ABILIFY [Concomitant]
     Active Substance: ARIPIPRAZOLE
     Route: 065
     Dates: start: 201703
  3. DOXEPIN [Concomitant]
     Active Substance: DOXEPIN
     Dates: start: 2015
  4. TOPAMAX [Concomitant]
     Active Substance: TOPIRAMATE
  5. BELSOMRA [Concomitant]
     Active Substance: SUVOREXANT
     Route: 065
  6. XANAX [Concomitant]
     Active Substance: ALPRAZOLAM
     Route: 065
     Dates: start: 1997
  7. IMITREX [Concomitant]
     Active Substance: SUMATRIPTAN SUCCINATE
  8. NEURONTIN [Concomitant]
     Active Substance: GABAPENTIN
  9. CONTRAVE [Suspect]
     Active Substance: BUPROPION HYDROCHLORIDE\NALTREXONE HYDROCHLORIDE
     Route: 048
     Dates: start: 20170312, end: 20170317
  10. LAMICTAL [Concomitant]
     Active Substance: LAMOTRIGINE
     Route: 065
     Dates: start: 201703
  11. PROTONIX [Concomitant]
     Active Substance: PANTOPRAZOLE SODIUM
     Dates: start: 2004
  12. SYNTHROID [Concomitant]
     Active Substance: LEVOTHYROXINE SODIUM
     Dates: start: 2014
  13. MYRBETRIQ [Concomitant]
     Active Substance: MIRABEGRON
     Dates: start: 2016
  14. SINGULAIR [Concomitant]
     Active Substance: MONTELUKAST SODIUM
     Route: 065
     Dates: start: 2015

REACTIONS (7)
  - Drug withdrawal syndrome [Unknown]
  - Vomiting [Unknown]
  - Abdominal discomfort [Unknown]
  - Abnormal behaviour [Unknown]
  - Diarrhoea [Unknown]
  - Abdominal pain upper [Unknown]
  - Nausea [Unknown]

NARRATIVE: CASE EVENT DATE: 201703
